FAERS Safety Report 20090758 (Version 3)
Quarter: 2021Q4

REPORT INFORMATION
  Report Type: Report from Study
  Country: DE (occurrence: DE)
  Receive Date: 20211119
  Receipt Date: 20211229
  Transmission Date: 20220304
  Serious: Yes (Other)
  Sender: FDA-Public Use
  Company Number: DE-EMA-DD-20211101-bhushan_a-232152

PATIENT
  Age: 78 Year
  Sex: Female
  Weight: 65 kg

DRUGS (4)
  1. LENALIDOMIDE [Suspect]
     Active Substance: LENALIDOMIDE
     Indication: Plasma cell myeloma
     Dosage: 20 MILLIGRAM DAILY;
     Route: 048
     Dates: start: 20180807
  2. ELOTUZUMAB [Suspect]
     Active Substance: ELOTUZUMAB
     Indication: Plasma cell myeloma
     Dosage: 570 MILLIGRAM
     Route: 041
     Dates: start: 20210316
  3. ELOTUZUMAB [Suspect]
     Active Substance: ELOTUZUMAB
     Dosage: 20 MILLIGRAM
     Route: 065
     Dates: start: 20210322
  4. ELOTUZUMAB [Suspect]
     Active Substance: ELOTUZUMAB
     Dosage: 570 MILLIGRAM DAILY;
     Route: 065
     Dates: start: 20200609

REACTIONS (2)
  - Leukopenia [Unknown]
  - Prescribed underdose [Unknown]

NARRATIVE: CASE EVENT DATE: 20210330
